FAERS Safety Report 15164920 (Version 1)
Quarter: 2018Q3

REPORT INFORMATION
  Report Type: Spontaneous
  Country: US (occurrence: US)
  Receive Date: 20180719
  Receipt Date: 20180719
  Transmission Date: 20181010
  Serious: No
  Sender: FDA-Public Use
  Company Number: US-PFIZER INC-2018291534

PATIENT
  Age: 33 Year
  Sex: Male

DRUGS (1)
  1. KERYDIN [Suspect]
     Active Substance: TAVABOROLE
     Indication: ONYCHOMYCOSIS
     Dosage: 5% SOLUTION IN A 10ML BOTTLE. TOPICAL APPLICATION APPLIED ONCE DAILY.
     Route: 061
     Dates: start: 20171108, end: 20180619

REACTIONS (1)
  - Skin irritation [Unknown]
